FAERS Safety Report 4952028-0 (Version None)
Quarter: 2006Q1

REPORT INFORMATION
  Report Type: 
  Country: None (occurrence: None)
  Receive Date: 20060322
  Receipt Date: 20060322
  Transmission Date: 20060701
  Serious: Yes (Hospitalization)
  Sender: FDA-Public Use
  Company Number: None

PATIENT
  Age: 71 Year
  Sex: Male
  Weight: 30.8446 kg

DRUGS (1)
  1. FLUOXETINE [Suspect]
     Dosage: 10 MG DAILY PO
     Route: 047
     Dates: start: 20060310, end: 20060313

REACTIONS (1)
  - INAPPROPRIATE ANTIDIURETIC HORMONE SECRETION [None]
